FAERS Safety Report 21916827 (Version 1)
Quarter: 2023Q1

REPORT INFORMATION
  Report Type: Spontaneous
  Country: US (occurrence: US)
  Receive Date: 20230126
  Receipt Date: 20230126
  Transmission Date: 20230417
  Serious: No
  Sender: FDA-Public Use
  Company Number: US-MYLANLABS-2022M1126953

PATIENT
  Age: 57 Year
  Sex: Female
  Weight: 62.14 kg

DRUGS (1)
  1. IBANDRONIC ACID [Suspect]
     Active Substance: IBANDRONIC ACID
     Indication: Osteoporosis
     Dosage: UNK UNK, Q3MONTHS
     Route: 042
     Dates: start: 20221109, end: 20221109

REACTIONS (2)
  - Wrong technique in device usage process [Unknown]
  - Syringe issue [Unknown]

NARRATIVE: CASE EVENT DATE: 20221109
